FAERS Safety Report 9726807 (Version 1)
Quarter: 2013Q4

REPORT INFORMATION
  Report Type: Spontaneous
  Country: US (occurrence: US)
  Receive Date: 20131203
  Receipt Date: 20131203
  Transmission Date: 20140711
  Serious: No
  Sender: FDA-Public Use
  Company Number: US-NOVEN-13US006370

PATIENT
  Sex: Female

DRUGS (4)
  1. FENTANYL [Suspect]
     Indication: NEUROPATHY PERIPHERAL
     Dosage: 2 X 25 UG/HR
     Route: 062
     Dates: start: 20130226
  2. NEURONTIN [Concomitant]
     Indication: NEUROPATHY PERIPHERAL
     Route: 048
  3. DILAUDID [Concomitant]
     Indication: NEURALGIA
     Route: 048
  4. VALIUM                             /00017001/ [Concomitant]
     Indication: ANXIETY
     Route: 048

REACTIONS (4)
  - Inadequate analgesia [Not Recovered/Not Resolved]
  - Night sweats [Not Recovered/Not Resolved]
  - Drug administration error [Not Recovered/Not Resolved]
  - Product quality issue [Not Recovered/Not Resolved]
